FAERS Safety Report 7425930-8 (Version None)
Quarter: 2011Q2

REPORT INFORMATION
  Report Type: 
  Country: None (occurrence: None)
  Receive Date: 20110420
  Receipt Date: 20091220
  Transmission Date: 20111010
  Serious: Yes (Death, Hospitalization, Other)
  Sender: FDA-Public Use
  Company Number: US-BAYER-200943105NA

PATIENT
  Age: 73 Year
  Sex: Male
  Weight: 96 kg

DRUGS (12)
  1. TRASYLOL [Suspect]
     Indication: CORONARY ARTERY BYPASS
     Dosage: 200 ML, PUMP PRIME
     Route: 042
     Dates: start: 20050524
  2. HYZAAR [Concomitant]
     Dosage: 100-25 MG DAILY
     Route: 048
  3. HEPARIN [Concomitant]
     Dosage: UNK
     Dates: start: 20050524
  4. PROTAMINE SULFATE [Concomitant]
     Dosage: UNK
     Dates: start: 20050524
  5. LASIX [Concomitant]
     Dosage: 40 MG, QD
     Route: 048
  6. LANOXIN [Concomitant]
     Dosage: 0.125 MG, QD
     Route: 048
  7. ALDACTONE [Concomitant]
     Dosage: ONE HALF TABLET DAILY
     Route: 048
  8. EPINEPHRINE [Concomitant]
     Dosage: UNK
     Dates: start: 20050524
  9. TRASYLOL [Suspect]
     Indication: AORTIC VALVE REPLACEMENT
  10. PRIMACOR [Concomitant]
     Dosage: UNK
     Dates: start: 20050524
  11. TRASYLOL [Suspect]
     Indication: ATRIAL FIBRILLATION
  12. TOPROL-XL [Concomitant]
     Dosage: 25 MG, BID
     Route: 048

REACTIONS (9)
  - ANXIETY [None]
  - UNEVALUABLE EVENT [None]
  - FEAR [None]
  - RENAL FAILURE [None]
  - DEPRESSION [None]
  - INJURY [None]
  - PAIN [None]
  - DEATH [None]
  - ANHEDONIA [None]
